FAERS Safety Report 17305794 (Version 1)
Quarter: 2020Q1

REPORT INFORMATION
  Report Type: Spontaneous
  Country: GB (occurrence: GB)
  Receive Date: 20200123
  Receipt Date: 20200123
  Transmission Date: 20200409
  Serious: Yes (Other)
  Sender: FDA-Public Use
  Company Number: GB-PFIZER INC-2020026967

PATIENT
  Age: 32 Year
  Sex: Male

DRUGS (1)
  1. DOXYCYCLINE MONOHYDRATE [Suspect]
     Active Substance: DOXYCYCLINE
     Indication: GENITAL INFECTION
     Dosage: 200 MG, 1X/DAY
     Route: 048
     Dates: start: 20191122, end: 20191202

REACTIONS (3)
  - Nausea [Recovering/Resolving]
  - Vision blurred [Recovering/Resolving]
  - Headache [Recovering/Resolving]

NARRATIVE: CASE EVENT DATE: 20191126
